FAERS Safety Report 4591915-2 (Version None)
Quarter: 2005Q1

REPORT INFORMATION
  Report Type: 
  Country: None (occurrence: None)
  Receive Date: 20050225
  Receipt Date: 20041022
  Transmission Date: 20050727
  Serious: Yes (Life-Threatening, Hospitalization, Disabling)
  Sender: FDA-Public Use
  Company Number: US-MERCK-0410USA03511

PATIENT
  Age: 71 Year
  Sex: Female
  Weight: 59 kg

DRUGS (7)
  1. VIOXX [Suspect]
     Indication: ARTHRALGIA
     Route: 048
     Dates: start: 20010101
  2. ZESTRIL [Concomitant]
     Route: 065
  3. VERAPAMIL [Concomitant]
     Route: 065
  4. LIPITOR [Concomitant]
     Route: 065
  5. PREMARIN [Concomitant]
     Route: 065
     Dates: end: 20030801
  6. NEURONTIN [Concomitant]
     Route: 065
     Dates: start: 20011201
  7. PLAVIX [Concomitant]
     Route: 065

REACTIONS (4)
  - CEREBROVASCULAR ACCIDENT [None]
  - GANGRENE [None]
  - LEG AMPUTATION [None]
  - PERIPHERAL EMBOLISM [None]
